FAERS Safety Report 16536310 (Version 2)
Quarter: 2019Q3

REPORT INFORMATION
  Report Type: Spontaneous
  Country: US (occurrence: US)
  Receive Date: 20190705
  Receipt Date: 20190710
  Transmission Date: 20191004
  Serious: No
  Sender: FDA-Public Use
  Company Number: US-PFIZER INC-2019280405

PATIENT
  Age: 58 Year
  Sex: Female
  Weight: 70 kg

DRUGS (1)
  1. LYRICA [Suspect]
     Active Substance: PREGABALIN
     Indication: NECK PAIN
     Dosage: 50 MG, (TWO CAPSULES AND SOMETIMES ONE CAPSULE A DAY)
     Route: 048

REACTIONS (4)
  - Dizziness [Recovering/Resolving]
  - Inflammation [Unknown]
  - Pain in extremity [Unknown]
  - Pain [Unknown]
